FAERS Safety Report 14165356 (Version 3)
Quarter: 2018Q1

REPORT INFORMATION
  Report Type: Spontaneous
  Country: CA (occurrence: CA)
  Receive Date: 20171107
  Receipt Date: 20180118
  Transmission Date: 20180508
  Serious: Yes (Other)
  Sender: FDA-Public Use
  Company Number: CA-GLAXOSMITHKLINE-CA2017GSK091406

PATIENT
  Age: 55 Year
  Sex: Female

DRUGS (2)
  1. PREDNISONE. [Concomitant]
     Active Substance: PREDNISONE
     Indication: PRODUCT USED FOR UNKNOWN INDICATION
     Dosage: UNK
     Dates: start: 20170610
  2. BENLYSTA [Suspect]
     Active Substance: BELIMUMAB
     Indication: SYSTEMIC LUPUS ERYTHEMATOSUS
     Dosage: UNK

REACTIONS (27)
  - Tongue ulceration [Unknown]
  - Feeling abnormal [Unknown]
  - Butterfly rash [Unknown]
  - Ear pain [Unknown]
  - Dyspnoea [Unknown]
  - Sinusitis [Unknown]
  - Alopecia [Unknown]
  - Pyrexia [Unknown]
  - Movement disorder [Unknown]
  - Cough [Unknown]
  - Inflammation [Unknown]
  - Musculoskeletal stiffness [Unknown]
  - Bronchitis [Unknown]
  - Nasal congestion [Recovering/Resolving]
  - Systemic lupus erythematosus [Unknown]
  - Oral pain [Unknown]
  - Fatigue [Unknown]
  - Hypersomnia [Unknown]
  - Nasopharyngitis [Unknown]
  - Lung infection [Unknown]
  - Gingival ulceration [Unknown]
  - Drug effect decreased [Unknown]
  - Oropharyngeal pain [Recovering/Resolving]
  - Peripheral swelling [Unknown]
  - Mouth ulceration [Unknown]
  - Weight decreased [Unknown]
  - Pain in extremity [Unknown]

NARRATIVE: CASE EVENT DATE: 20180104
